FAERS Safety Report 7999351-3 (Version None)
Quarter: 2011Q4

REPORT INFORMATION
  Report Type: 
  Country: None (occurrence: None)
  Receive Date: 20111221
  Receipt Date: 20111219
  Transmission Date: 20120403
  Serious: Yes (Hospitalization, Other)
  Sender: FDA-Public Use
  Company Number: US-ABBOTT-11P-163-0871034-00

PATIENT
  Sex: Male
  Weight: 79.45 kg

DRUGS (2)
  1. PENTASA [Concomitant]
     Indication: CROHN'S DISEASE
  2. HUMIRA [Suspect]
     Indication: CROHN'S DISEASE
     Route: 058
     Dates: start: 20110101, end: 20110701

REACTIONS (5)
  - INFECTIOUS PERITONITIS [None]
  - ABDOMINAL PAIN [None]
  - INTESTINAL PERFORATION [None]
  - INTESTINAL OBSTRUCTION [None]
  - INFECTION [None]
